FAERS Safety Report 6137131-4 (Version None)
Quarter: 2009Q1

REPORT INFORMATION
  Report Type: 
  Country: None (occurrence: None)
  Receive Date: 20090330
  Receipt Date: 20090319
  Transmission Date: 20090719
  Serious: Yes (Hospitalization, Other)
  Sender: FDA-Public Use
  Company Number: FR-ELI_LILLY_AND_COMPANY-FR200903004748

PATIENT
  Age: 74 Year
  Sex: Male

DRUGS (11)
  1. HUMALOG [Suspect]
     Indication: TYPE 2 DIABETES MELLITUS
     Dosage: 12 UL, 2/D
     Route: 058
  2. AMLOR [Concomitant]
     Dosage: UNK, UNKNOWN
     Route: 065
  3. SERTRAL [Concomitant]
     Dosage: UNK, UNKNOWN
     Route: 065
  4. TRIATEC [Concomitant]
     Dosage: UNK, UNKNOWN
     Route: 065
  5. FERROUS SULFATE TAB [Concomitant]
     Dosage: UNK, UNKNOWN
     Route: 065
  6. LASIX [Concomitant]
     Dosage: UNK, UNKNOWN
     Route: 065
  7. PLAVIX [Concomitant]
     Dosage: UNK, UNKNOWN
     Route: 065
  8. SEROPLEX [Concomitant]
     Dosage: UNK, UNKNOWN
     Route: 065
  9. HYPERIUM [Concomitant]
     Dosage: UNK, UNKNOWN
     Route: 065
  10. TADENAN [Concomitant]
     Dosage: UNK, UNKNOWN
     Route: 065
  11. OMEPRAZOLE [Concomitant]
     Dosage: UNK, UNKNOWN
     Route: 065

REACTIONS (6)
  - BALANCE DISORDER [None]
  - CONFUSIONAL STATE [None]
  - DIABETES MELLITUS INADEQUATE CONTROL [None]
  - GAIT DISTURBANCE [None]
  - HYPOGLYCAEMIA [None]
  - RENAL FAILURE [None]
